FAERS Safety Report 15020738 (Version 1)
Quarter: 2018Q2

REPORT INFORMATION
  Report Type: Spontaneous
  Country: US (occurrence: US)
  Receive Date: 20180601
  Receipt Date: 20180601
  Transmission Date: 20180711
  Serious: Yes (Other)
  Sender: FDA-Public Use
  Company Number: None

PATIENT
  Age: 17 Year
  Sex: Female
  Weight: 54 kg

DRUGS (5)
  1. MULTIVITAMIN [Concomitant]
     Active Substance: VITAMINS
  2. ZYRTEC [Concomitant]
     Active Substance: CETIRIZINE HYDROCHLORIDE
  3. MONTELUKAST SODIUM 10 MG TABLETS [Suspect]
     Active Substance: MONTELUKAST SODIUM
     Indication: STRIDOR
     Dosage: ?          QUANTITY:30 DF DOSAGE FORM;?
     Route: 048
  4. VITAMIN D3 [Concomitant]
     Active Substance: CHOLECALCIFEROL
  5. B2 [Concomitant]

REACTIONS (5)
  - Anxiety [None]
  - Abdominal discomfort [None]
  - Negative thoughts [None]
  - Sleep disorder [None]
  - Mental status changes [None]

NARRATIVE: CASE EVENT DATE: 20180527
